FAERS Safety Report 13179280 (Version 1)
Quarter: 2017Q1

REPORT INFORMATION
  Report Type: Spontaneous
  Country: FR (occurrence: FR)
  Receive Date: 20170202
  Receipt Date: 20170202
  Transmission Date: 20170428
  Serious: Yes (Other)
  Sender: FDA-Public Use
  Company Number: FR-SA-2017SA016398

PATIENT
  Age: 68 Year
  Sex: Female

DRUGS (6)
  1. APROVEL [Suspect]
     Active Substance: IRBESARTAN
     Indication: HYPERTENSION
     Route: 048
  2. ASPEGIC NOURRISSONS [Suspect]
     Active Substance: ASPIRIN LYSINE
     Indication: PROPHYLAXIS
     Dosage: 100 MG, POWDER FOR ORAL SOLUTION IN DOSE - SACHET
     Route: 048
     Dates: start: 201010
  3. LODOZ [Suspect]
     Active Substance: BISOPROLOL FUMARATE\HYDROCHLOROTHIAZIDE
     Indication: HYPERTENSION
     Route: 048
  4. LOXEN [Suspect]
     Active Substance: NICARDIPINE HYDROCHLORIDE
     Indication: RAYNAUD^S PHENOMENON
     Route: 048
     Dates: start: 201601
  5. HYDREA [Suspect]
     Active Substance: HYDROXYUREA
     Indication: POLYCYTHAEMIA VERA
     Dosage: 500 MG, CAPSULE
     Route: 048
     Dates: start: 201010
  6. CARLYTENE [Suspect]
     Active Substance: MOXISYLYTE
     Indication: RAYNAUD^S PHENOMENON
     Route: 048
     Dates: start: 201601

REACTIONS (1)
  - Bowen^s disease [Not Recovered/Not Resolved]

NARRATIVE: CASE EVENT DATE: 2016
